FAERS Safety Report 6910135-7 (Version None)
Quarter: 2010Q3

REPORT INFORMATION
  Report Type: 
  Country: None (occurrence: None)
  Receive Date: 20100806
  Receipt Date: 20100722
  Transmission Date: 20110219
  Serious: Yes (Other)
  Sender: FDA-Public Use
  Company Number: US-PFIZER INC-2010097911

PATIENT
  Sex: Female

DRUGS (1)
  1. VARENICLINE TARTRATE [Suspect]

REACTIONS (5)
  - ANGER [None]
  - HOMICIDAL IDEATION [None]
  - NIGHTMARE [None]
  - PERSONALITY CHANGE [None]
  - SUICIDAL IDEATION [None]
